FAERS Safety Report 6390120-7 (Version None)
Quarter: 2009Q4

REPORT INFORMATION
  Report Type: 
  Country: None (occurrence: None)
  Receive Date: 20091003
  Receipt Date: 20090917
  Transmission Date: 20100525
  Serious: Yes (Hospitalization, Disabling)
  Sender: FDA-Public Use
  Company Number: AUR-APL-2009-00741

PATIENT
  Age: 39 Year
  Sex: Male

DRUGS (19)
  1. METOPROLOL [Suspect]
     Indication: PULMONARY HYPERTENSION
     Dosage: 50MG, DAILY, ORAL
     Route: 048
     Dates: start: 20090326, end: 20090814
  2. BLINDED STUDY THERAPY (SILDENAFIL) [Suspect]
     Indication: PULMONARY HYPERTENSION
     Dosage: 20MG, TID, ORAL
     Route: 048
     Dates: start: 20090225, end: 20090416
  3. BLINDED STUDY DRUG (SILDENAFIL) [Suspect]
     Indication: PULMONARY HYPERTENSION
     Dosage: 40MG-TID-ORAL
     Route: 048
     Dates: start: 20090605, end: 20090723
  4. SILDENAFIL CITRATE [Suspect]
     Indication: PULMONARY HYPERTENSION
     Dosage: 20MG-TID-ORAL
     Route: 048
     Dates: start: 20090724, end: 20090725
  5. SILDENAFIL CITRATE [Suspect]
     Indication: PULMONARY HYPERTENSION
     Dosage: 20MG-BID-ORAL
     Route: 048
     Dates: start: 20090726, end: 20090727
  6. SILDENAFIL CITRATE [Suspect]
     Indication: PULMONARY HYPERTENSION
     Dosage: 20MG-QD-ORAL
     Route: 048
     Dates: start: 20090728, end: 20090729
  7. DIGOXIN [Suspect]
     Indication: HEART RATE IRREGULAR
     Dosage: 0.125MG-DAILY-ORAL
     Route: 048
  8. IMDUR [Suspect]
     Indication: RIGHT VENTRICULAR FAILURE
     Dosage: 60MG-DAILY-ORAL
     Route: 048
     Dates: start: 20090326, end: 20090814
  9. HYDRALAZINE HCL [Suspect]
     Indication: RIGHT VENTRICULAR FAILURE
     Dosage: 50MG-DAILY-ORAL
     Route: 048
     Dates: start: 20090326, end: 20090814
  10. LEXAPRO [Concomitant]
  11. FUROSEMIDE [Concomitant]
  12. OXYCODONE HCL AND ACETAMINOPHEN [Concomitant]
  13. ALPRAZOLAM [Concomitant]
  14. ENALAPRIL MALEATE [Concomitant]
  15. POTASSIUM CHLORIDE ER [Concomitant]
  16. GABAPENTIN [Concomitant]
  17. WARFARIN SODIUM [Concomitant]
  18. HYDROXYUREA [Concomitant]
  19. MAGNESIUM OXIDE [Concomitant]

REACTIONS (11)
  - CHEST DISCOMFORT [None]
  - DYSPNOEA [None]
  - FATIGUE [None]
  - HAEMATOCRIT DECREASED [None]
  - HAEMOGLOBIN DECREASED [None]
  - HEADACHE [None]
  - HYPOTENSION [None]
  - OVERDOSE [None]
  - RED BLOOD CELL COUNT DECREASED [None]
  - RETICULOCYTE COUNT DECREASED [None]
  - SICKLE CELL ANAEMIA WITH CRISIS [None]
